FAERS Safety Report 6135054-8 (Version None)
Quarter: 2009Q1

REPORT INFORMATION
  Report Type: 
  Country: None (occurrence: None)
  Receive Date: 20090327
  Receipt Date: 20090317
  Transmission Date: 20090719
  Serious: Yes (Hospitalization)
  Sender: FDA-Public Use
  Company Number: KR-PFIZER INC-2007103634

PATIENT

DRUGS (1)
  1. MISOPROSTOL [Suspect]
     Indication: INDUCED LABOUR
     Route: 048
     Dates: start: 20060926

REACTIONS (6)
  - BLOOD DISORDER [None]
  - CENTRAL NERVOUS SYSTEM LESION [None]
  - LOSS OF CONSCIOUSNESS [None]
  - MULTI-ORGAN FAILURE [None]
  - OFF LABEL USE [None]
  - UTERINE HAEMORRHAGE [None]
